FAERS Safety Report 6882955-9 (Version None)
Quarter: 2010Q3

REPORT INFORMATION
  Report Type: 
  Country: None (occurrence: None)
  Receive Date: 20100727
  Receipt Date: 20100719
  Transmission Date: 20110219
  Serious: Yes (Hospitalization, Other)
  Sender: FDA-Public Use
  Company Number: 20108946

PATIENT
  Age: 73 Year
  Sex: Female

DRUGS (1)
  1. BACLOFEN [Suspect]
     Indication: MUSCLE SPASTICITY
     Dosage: 180  MCG, DAILY, INTRATHECAL
     Route: 037

REACTIONS (1)
  - CEREBRAL HAEMORRHAGE [None]
